APPROVED DRUG PRODUCT: ADENOSINE
Active Ingredient: ADENOSINE
Strength: 3MG/ML
Dosage Form/Route: INJECTABLE;INJECTION
Application: A078676 | Product #001
Applicant: TEVA PHARMACEUTICALS USA
Approved: Jul 31, 2008 | RLD: No | RS: No | Type: DISCN